FAERS Safety Report 5477616-7 (Version None)
Quarter: 2007Q4

REPORT INFORMATION
  Report Type: 
  Country: None (occurrence: None)
  Receive Date: 20071005
  Receipt Date: 20070920
  Transmission Date: 20080405
  Serious: Yes (Hospitalization)
  Sender: FDA-Public Use
  Company Number: PL-ELI_LILLY_AND_COMPANY-PL200707002228

PATIENT
  Sex: Female

DRUGS (6)
  1. HUMULIN 70/30 [Suspect]
     Indication: DIABETES MELLITUS
     Dosage: 30 IU, 2/D
     Dates: start: 20040224
  2. FUROSEMIDE [Concomitant]
     Indication: RENAL FAILURE
     Dosage: UNK, UNKNOWN
     Route: 065
     Dates: start: 20050321
  3. VIVACOR [Concomitant]
     Indication: HYPERTENSION
     Dosage: UNK, UNKNOWN
     Route: 065
     Dates: start: 20060907
  4. LOZAP [Concomitant]
     Indication: HYPERTENSION
     Dosage: UNK, UNKNOWN
     Route: 065
     Dates: start: 20060907
  5. CARDURA [Concomitant]
     Indication: HYPERTENSION
     Dosage: UNK, UNKNOWN
     Route: 065
     Dates: start: 20070118
  6. ZOCOR [Concomitant]
     Indication: PROPHYLAXIS
     Dosage: UNK, UNKNOWN
     Route: 065
     Dates: start: 20060915

REACTIONS (2)
  - CATHETER RELATED COMPLICATION [None]
  - RENAL FAILURE [None]
